FAERS Safety Report 5007406-0 (Version None)
Quarter: 2006Q2

REPORT INFORMATION
  Report Type: 
  Country: None (occurrence: None)
  Receive Date: 20060518
  Receipt Date: 20060518
  Transmission Date: 20061013
  Serious: Yes (Life-Threatening, Hospitalization)
  Sender: FDA-Public Use
  Company Number: None

PATIENT
  Age: 56 Year
  Sex: Female
  Weight: 64.6 kg

DRUGS (2)
  1. REFLUDAN [Suspect]
     Indication: HEPARIN-INDUCED THROMBOCYTOPENIA
     Dates: start: 20060418, end: 20060420
  2. REFLUDAN [Suspect]
     Dosage: 17.5 ML/HR - 7MG/HR -
     Dates: start: 20060423, end: 20060514

REACTIONS (9)
  - ASPIRATION [None]
  - CARDIO-RESPIRATORY ARREST [None]
  - ERYTHEMA OF EYELID [None]
  - EYELID OEDEMA [None]
  - MALAISE [None]
  - PARAESTHESIA [None]
  - SURGERY [None]
  - URTICARIA [None]
  - WHEEZING [None]
